FAERS Safety Report 7591965-8 (Version None)
Quarter: 2011Q3

REPORT INFORMATION
  Report Type: 
  Country: None (occurrence: None)
  Receive Date: 20110701
  Receipt Date: 20110701
  Transmission Date: 20111222
  Serious: Yes (Life-Threatening, Hospitalization)
  Sender: FDA-Public Use
  Company Number: None

PATIENT

DRUGS (2)
  1. HUMIRA [Suspect]
     Indication: ARTHRITIS
     Dosage: 1 INJECTION 2 X'S
     Dates: start: 20110517
  2. HUMIRA [Suspect]
     Indication: ARTHRITIS
     Dosage: 1 INJECTION 2 X'S
     Dates: start: 20110531

REACTIONS (7)
  - CONFUSIONAL STATE [None]
  - PYREXIA [None]
  - OXYGEN SATURATION DECREASED [None]
  - FATIGUE [None]
  - BLOOD POTASSIUM DECREASED [None]
  - PNEUMONIA [None]
  - HEART RATE INCREASED [None]
